FAERS Safety Report 22285030 (Version 1)
Quarter: 2023Q2

REPORT INFORMATION
  Report Type: Spontaneous
  Country: US (occurrence: US)
  Receive Date: 20230504
  Receipt Date: 20230504
  Transmission Date: 20230721
  Serious: No
  Sender: FDA-Public Use
  Company Number: US-KARYOPHARM-2023KPT001126

PATIENT

DRUGS (12)
  1. XPOVIO [Suspect]
     Active Substance: SELINEXOR
     Indication: Plasma cell myeloma
     Dosage: 100 MG, WEEKLY
     Route: 048
     Dates: start: 20230414
  2. ACYCLOVIR ABBOTT VIAL [Concomitant]
  3. AMIODARONE [Concomitant]
     Active Substance: AMIODARONE
  4. BORTEZOMIB [Concomitant]
     Active Substance: BORTEZOMIB
  5. DENOSUMAB [Concomitant]
     Active Substance: DENOSUMAB
  6. DECADRON [Concomitant]
     Active Substance: DEXAMETHASONE
  7. ELIQUIS [Concomitant]
     Active Substance: APIXABAN
  8. ERYTHROPOIETIN [Concomitant]
     Active Substance: ERYTHROPOIETIN
  9. EZETIMIBE [Concomitant]
     Active Substance: EZETIMIBE
  10. FLUCONAZOLE [Concomitant]
     Active Substance: FLUCONAZOLE
  11. FOLIC ACID [Concomitant]
     Active Substance: FOLIC ACID
  12. COMPAZINE [Concomitant]
     Active Substance: PROCHLORPERAZINE MALEATE

REACTIONS (3)
  - Blood calcium abnormal [Unknown]
  - Diarrhoea [Unknown]
  - Extra dose administered [Unknown]

NARRATIVE: CASE EVENT DATE: 20230401
